FAERS Safety Report 4364703-X (Version None)
Quarter: 2004Q2

REPORT INFORMATION
  Report Type: 
  Country: None (occurrence: None)
  Receive Date: 20040521
  Receipt Date: 20040503
  Transmission Date: 20050107
  Serious: Yes (Hospitalization, Other)
  Sender: FDA-Public Use
  Company Number: USA030742765

PATIENT
  Age: 70 Year
  Sex: Female

DRUGS (14)
  1. FORTEO [Suspect]
     Indication: OSTEOPOROSIS
     Dates: start: 20030502, end: 20031230
  2. KEFLEX [Suspect]
     Indication: CYSTITIS
  3. PROZAC [Concomitant]
  4. NORVASC [Concomitant]
  5. DIOVAN [Concomitant]
  6. TEMAZEPAM [Concomitant]
  7. PREMARIN [Concomitant]
  8. PRILOSEC [Concomitant]
  9. SYNTHROID [Concomitant]
  10. ASPIRIN [Concomitant]
  11. CALTRATE (CALCIUM CARBONATE) [Concomitant]
  12. VITAMIN E [Concomitant]
  13. MULTIVITAMIN [Concomitant]
  14. ELMIRON [Concomitant]

REACTIONS (6)
  - CELLULITIS [None]
  - CYSTITIS [None]
  - DIARRHOEA [None]
  - GASTROINTESTINAL NECROSIS [None]
  - HERPES ZOSTER [None]
  - INJECTION SITE PAIN [None]
